FAERS Safety Report 8426475-9 (Version None)
Quarter: 2012Q2

REPORT INFORMATION
  Report Type: 
  Country: None (occurrence: None)
  Receive Date: 20120524
  Receipt Date: 20120511
  Transmission Date: 20120825
  Serious: Yes (Death, Other)
  Sender: FDA-Public Use
  Company Number: AEGTM201200265

PATIENT
  Age: 65 Year
  Sex: Female

DRUGS (1)
  1. ALBUMIN (HUMAN) [Suspect]
     Indication: PRODUCT USED FOR UNKNOWN INDICATION
     Dosage: IV
     Route: 042

REACTIONS (2)
  - MEDICATION ERROR [None]
  - COUNTERFEIT DRUG ADMINISTERED [None]
